FAERS Safety Report 16792205 (Version 1)
Quarter: 2019Q3

REPORT INFORMATION
  Report Type: Spontaneous
  Country: JP (occurrence: JP)
  Receive Date: 20190910
  Receipt Date: 20190910
  Transmission Date: 20191005
  Serious: Yes (Death, Other)
  Sender: FDA-Public Use
  Company Number: JP-ROCHE-2348358

PATIENT
  Sex: Male
  Weight: 75 kg

DRUGS (5)
  1. IRINOTECAN HYDROCHLORIDE. [Concomitant]
     Active Substance: IRINOTECAN HYDROCHLORIDE
     Route: 041
     Dates: start: 20181106, end: 20190715
  2. OXALIPLATIN. [Concomitant]
     Active Substance: OXALIPLATIN
     Indication: COLON CANCER
     Dosage: DOSAGE IS UNCERTAIN.
     Route: 041
  3. AVASTIN [Suspect]
     Active Substance: BEVACIZUMAB
     Indication: RECTOSIGMOID CANCER
     Route: 041
     Dates: start: 20180703, end: 20181015
  4. AVASTIN [Suspect]
     Active Substance: BEVACIZUMAB
     Route: 041
     Dates: start: 20181106
  5. ESUEEWAN [Suspect]
     Active Substance: GIMERACIL\OTERACIL\TEGAFUR
     Indication: RECTOSIGMOID CANCER
     Route: 048
     Dates: start: 20181106

REACTIONS (4)
  - Acidosis [Unknown]
  - Colon cancer [Fatal]
  - Disseminated intravascular coagulation [Unknown]
  - Gastrointestinal perforation [Fatal]
